FAERS Safety Report 5175878-7 (Version None)
Quarter: 2006Q4

REPORT INFORMATION
  Report Type: 
  Country: None (occurrence: None)
  Receive Date: 20061215
  Receipt Date: 20061211
  Transmission Date: 20070319
  Serious: Yes (Life-Threatening, Hospitalization, Disabling, Other)
  Sender: FDA-Public Use
  Company Number: US-GLAXOSMITHKLINE-A0631150A

PATIENT
  Age: 27 Year
  Sex: Female

DRUGS (5)
  1. LAMICTAL [Suspect]
     Indication: AFFECTIVE DISORDER
     Route: 048
     Dates: start: 20061101, end: 20061201
  2. LEXAPRO [Concomitant]
  3. ORAL CONTRACEPTIVES [Concomitant]
  4. VALTREX [Concomitant]
  5. FLU VACCINE [Concomitant]
     Dates: start: 20061127, end: 20061127

REACTIONS (20)
  - ACIDOSIS [None]
  - ACUTE RESPIRATORY DISTRESS SYNDROME [None]
  - CHILLS [None]
  - DISSEMINATED INTRAVASCULAR COAGULATION [None]
  - DYSPNOEA [None]
  - FLUSHING [None]
  - FUNGAEMIA [None]
  - FUNGUS URINE TEST POSITIVE [None]
  - HAEMATOCHEZIA [None]
  - HEPATIC FAILURE [None]
  - HYPERSENSITIVITY [None]
  - INTESTINAL ISCHAEMIA [None]
  - MUCOSAL EROSION [None]
  - MYOCARDITIS [None]
  - PLEURAL EFFUSION [None]
  - PNEUMONIA [None]
  - PYREXIA [None]
  - RASH [None]
  - RENAL FAILURE [None]
  - RESPIRATORY FAILURE [None]
